FAERS Safety Report 14161750 (Version 3)
Quarter: 2018Q1

REPORT INFORMATION
  Report Type: Spontaneous
  Country: BR (occurrence: BR)
  Receive Date: 20171106
  Receipt Date: 20180319
  Transmission Date: 20180508
  Serious: Yes (Hospitalization, Other)
  Sender: FDA-Public Use
  Company Number: BR-ABBVIE-17P-020-2150955-00

PATIENT
  Sex: Male
  Weight: 84 kg

DRUGS (10)
  1. LAMITOR [Suspect]
     Active Substance: LAMOTRIGINE
     Indication: PRODUCT USED FOR UNKNOWN INDICATION
     Route: 065
     Dates: start: 201612
  2. CLOBAZAM [Concomitant]
     Active Substance: CLOBAZAM
     Indication: CONVULSION PROPHYLAXIS
     Dosage: HALF TABLET IN THE MORNING/ HALF TABLET IN THE AFTERNOON/ 1 TABLET AT NIGHT
     Route: 048
  3. KEPPRA [Concomitant]
     Active Substance: LEVETIRACETAM
     Indication: CONVULSION PROPHYLAXIS
     Route: 048
  4. DIVALCON ER [Suspect]
     Active Substance: DIVALPROEX SODIUM
     Indication: CONVULSION PROPHYLAXIS
     Dosage: 2 TABLETS AT 6:30 A.M./ 1 TABLET AT 6:30 P.M.
     Route: 048
  5. DEPAKOTE [Suspect]
     Active Substance: DIVALPROEX SODIUM
     Indication: PRODUCT USED FOR UNKNOWN INDICATION
     Route: 065
  6. DEPAKOTE ER [Suspect]
     Active Substance: DIVALPROEX SODIUM
     Indication: PRODUCT USED FOR UNKNOWN INDICATION
     Dosage: 2 TABLETS AT 6:30 A.M./ 1 TABLET AT 6:30 P.M.
     Route: 048
  7. VIMPAT [Concomitant]
     Active Substance: LACOSAMIDE
     Indication: CONVULSION PROPHYLAXIS
     Dosage: MORNING/ NIGHT; FORM STRENGTH: 100 MG
     Route: 048
     Dates: start: 20161231
  8. URBANIL [Concomitant]
     Active Substance: CLOBAZAM
     Indication: CONVULSION PROPHYLAXIS
     Route: 048
  9. FRISIUM [Concomitant]
     Active Substance: CLOBAZAM
     Indication: CONVULSION PROPHYLAXIS
     Route: 048
  10. DEPAKOTE ER [Suspect]
     Active Substance: DIVALPROEX SODIUM
     Route: 048

REACTIONS (10)
  - Mouth swelling [Recovered/Resolved]
  - Swelling [Recovered/Resolved]
  - Hypersensitivity [Recovered/Resolved]
  - Drug administered to patient of inappropriate age [Unknown]
  - Seizure [Recovering/Resolving]
  - Drug ineffective [Unknown]
  - Rash [Recovered/Resolved]
  - Inappropriate schedule of drug administration [Unknown]
  - Product quality issue [Unknown]
  - Papule [Recovered/Resolved]

NARRATIVE: CASE EVENT DATE: 201612
